FAERS Safety Report 12852963 (Version 1)
Quarter: 2016Q4

REPORT INFORMATION
  Report Type: Spontaneous
  Country: US (occurrence: US)
  Receive Date: 20161017
  Receipt Date: 20161017
  Transmission Date: 20170207
  Serious: No
  Sender: FDA-Public Use
  Company Number: US-JAZZ-JPI-P-026774

PATIENT
  Age: 56 Year
  Sex: Female

DRUGS (8)
  1. CYMBALTA [Concomitant]
     Active Substance: DULOXETINE HYDROCHLORIDE
  2. XYREM [Suspect]
     Active Substance: SODIUM OXYBATE
     Dosage: 3.75 G, BID
     Route: 048
     Dates: start: 201410
  3. DEXAMPHETAMINE [Concomitant]
     Active Substance: AMPHETAMINE
  4. METFORMIN [Concomitant]
     Active Substance: METFORMIN HYDROCHLORIDE
  5. XYREM [Suspect]
     Active Substance: SODIUM OXYBATE
     Indication: NARCOLEPSY
     Dosage: 2.25 G, BID
     Route: 048
     Dates: start: 20121202, end: 201212
  6. XYREM [Suspect]
     Active Substance: SODIUM OXYBATE
     Indication: CATAPLEXY
     Dosage: DOSE ADJUSTMENTS
     Route: 048
     Dates: start: 201212, end: 2014
  7. PROVIGIL [Suspect]
     Active Substance: MODAFINIL
     Indication: PRODUCT USED FOR UNKNOWN INDICATION
  8. LIPITOR [Concomitant]
     Active Substance: ATORVASTATIN CALCIUM

REACTIONS (22)
  - Nausea [Recovered/Resolved]
  - Condition aggravated [Not Recovered/Not Resolved]
  - Bronchitis [Unknown]
  - Abnormal dreams [Not Recovered/Not Resolved]
  - Weight decreased [Unknown]
  - Tooth disorder [Unknown]
  - Sensitivity of teeth [Not Recovered/Not Resolved]
  - Condition aggravated [Unknown]
  - Initial insomnia [Unknown]
  - Neuropathy peripheral [Recovered/Resolved]
  - Dizziness [Recovered/Resolved]
  - Nightmare [Recovered/Resolved]
  - Blood pressure measurement [Unknown]
  - Bruxism [Unknown]
  - Dental implantation [Unknown]
  - Headache [Unknown]
  - Pre-existing condition improved [Unknown]
  - Lacrimation increased [Recovered/Resolved]
  - Toothache [Not Recovered/Not Resolved]
  - Fibromyalgia [Recovered/Resolved]
  - Dry mouth [Unknown]
  - Therapeutic response unexpected [Unknown]

NARRATIVE: CASE EVENT DATE: 201212
